FAERS Safety Report 12990795 (Version 1)
Quarter: 2016Q4

REPORT INFORMATION
  Report Type: Report from Study
  Country: None (occurrence: BR)
  Receive Date: 20161201
  Receipt Date: 20161201
  Transmission Date: 20170207
  Serious: Yes (Hospitalization)
  Sender: FDA-Public Use
  Company Number: BR-ABBVIE-16P-020-1794154-00

PATIENT
  Age: 46 Year
  Sex: Male
  Weight: 75 kg

DRUGS (4)
  1. SYNTHROID [Suspect]
     Active Substance: LEVOTHYROXINE SODIUM
     Indication: HYPOTHYROIDISM
     Route: 048
     Dates: start: 2014
  2. FINASTERIDE. [Concomitant]
     Active Substance: FINASTERIDE
     Dates: start: 2013
  3. ADDERA D3 [Concomitant]
     Active Substance: CHOLECALCIFEROL
     Indication: VITAMIN D DECREASED
  4. FINASTERIDE. [Concomitant]
     Active Substance: FINASTERIDE
     Indication: PRODUCT USED FOR UNKNOWN INDICATION
     Dates: start: 201610

REACTIONS (2)
  - Blood folate decreased [Not Recovered/Not Resolved]
  - Diverticulitis [Recovered/Resolved]

NARRATIVE: CASE EVENT DATE: 201609
